FAERS Safety Report 11500727 (Version 1)
Quarter: 2015Q3

REPORT INFORMATION
  Report Type: Spontaneous
  Country: US (occurrence: None)
  Receive Date: 20150910
  Receipt Date: 20150910
  Transmission Date: 20151125
  Serious: Yes (Life-Threatening, Hospitalization)
  Sender: FDA-Public Use
  Company Number: None

PATIENT
  Age: 3 Year
  Sex: Female
  Weight: 16.8 kg

DRUGS (2)
  1. OMEGAVEN [Suspect]
     Active Substance: FISH OIL
     Indication: GASTROINTESTINAL DISORDER
     Dosage: 1 G/KG/DAY OVER 12 HR
     Dates: start: 2013
  2. OMEGAVEN [Suspect]
     Active Substance: FISH OIL
     Indication: LIVER DISORDER
     Dosage: 1 G/KG/DAY OVER 12 HR
     Dates: start: 2013

REACTIONS (3)
  - Bacillus infection [None]
  - Catheter site erythema [None]
  - Device related infection [None]

NARRATIVE: CASE EVENT DATE: 20150508
